FAERS Safety Report 9175861 (Version 1)
Quarter: 2013Q1

REPORT INFORMATION
  Report Type: Spontaneous
  Country: GB (occurrence: GB)
  Receive Date: 20130320
  Receipt Date: 20130320
  Transmission Date: 20140127
  Serious: Yes (Hospitalization, Disabling, Other)
  Sender: FDA-Public Use
  Company Number: GB-ROCHE-1197802

PATIENT
  Age: 14 Year
  Sex: Female
  Weight: 44.45 kg

DRUGS (2)
  1. TAMIFLU [Suspect]
     Indication: ANTIVIRAL PROPHYLAXIS
     Route: 048
     Dates: start: 200904, end: 200904
  2. AMITRIPTYLINE [Concomitant]

REACTIONS (6)
  - Abdominal pain upper [Unknown]
  - Chronic fatigue syndrome [Not Recovered/Not Resolved]
  - Headache [Unknown]
  - Impaired healing [Unknown]
  - Immune system disorder [Not Recovered/Not Resolved]
  - Infection [Unknown]
